FAERS Safety Report 21388340 (Version 1)
Quarter: 2022Q3

REPORT INFORMATION
  Report Type: Spontaneous
  Country: DE (occurrence: DE)
  Receive Date: 20220928
  Receipt Date: 20220928
  Transmission Date: 20221026
  Serious: Yes (Hospitalization, Other)
  Sender: FDA-Public Use
  Company Number: DE-BoehringerIngelheim-2022-BI-193583

PATIENT
  Age: 54 Year
  Sex: Female
  Weight: 49 kg

DRUGS (21)
  1. CLONIDINE [Suspect]
     Active Substance: CLONIDINE
     Indication: Product used for unknown indication
     Route: 048
  2. CLONIDINE [Suspect]
     Active Substance: CLONIDINE
     Route: 048
  3. INSULIN ASPART [Suspect]
     Active Substance: INSULIN ASPART
     Indication: Product used for unknown indication
     Dosage: 300 IE/3ML, 6-6-6-0, PREFILLED SYRINGS
     Route: 058
  4. CANDESARTAN [Suspect]
     Active Substance: CANDESARTAN
     Indication: Product used for unknown indication
     Route: 048
  5. LERCANIDIPINE [Suspect]
     Active Substance: LERCANIDIPINE
     Indication: Product used for unknown indication
     Route: 048
  6. INSULIN GLARGINE [Suspect]
     Active Substance: INSULIN GLARGINE
     Indication: Product used for unknown indication
     Dosage: 300 IE/3ML, 0-0-0-20 PREFILLED SYRINGE
     Route: 058
  7. NEBIVOLOL [Suspect]
     Active Substance: NEBIVOLOL
     Indication: Product used for unknown indication
     Route: 048
  8. ALLOPURINOL [Concomitant]
     Active Substance: ALLOPURINOL
     Indication: Product used for unknown indication
     Route: 048
  9. EPLERENONE [Concomitant]
     Active Substance: EPLERENONE
     Indication: Product used for unknown indication
     Route: 048
  10. LEVOTHYROXINE SODIUM [Concomitant]
     Active Substance: LEVOTHYROXINE SODIUM
     Indication: Product used for unknown indication
     Route: 048
  11. PANTOPRAZOLE [Concomitant]
     Active Substance: PANTOPRAZOLE
     Indication: Product used for unknown indication
     Route: 048
  12. natriumhydrogencarbona [Concomitant]
     Indication: Product used for unknown indication
     Dosage: 1-1-1-0
     Route: 048
  13. ATORVASTATIN [Concomitant]
     Active Substance: ATORVASTATIN
     Indication: Product used for unknown indication
     Route: 048
  14. SEVELAMER [Concomitant]
     Active Substance: SEVELAMER
     Indication: Product used for unknown indication
     Dosage: 2-2-2-0,
     Route: 048
  15. ALFACALCIDOL [Concomitant]
     Active Substance: ALFACALCIDOL
     Indication: Product used for unknown indication
     Route: 048
  16. TORSEMIDE [Concomitant]
     Active Substance: TORSEMIDE
     Indication: Product used for unknown indication
     Route: 048
  17. CHOLECALCIFEROL [Concomitant]
     Active Substance: CHOLECALCIFEROL
     Indication: Product used for unknown indication
     Route: 048
  18. EPOETIN ALFA [Concomitant]
     Active Substance: ERYTHROPOIETIN
     Indication: Product used for unknown indication
     Dosage: INJECTION SOLUTION PREFILLED SYRINGE?MONDAY PREFILLED SYRINGE?EPOETIN ALFA HEXAL 6000 I.E./0,6 ML
     Route: 058
  19. osvaren  435mg/235mg [Concomitant]
     Indication: Product used for unknown indication
     Dosage: 435MG/235MG
     Route: 048
  20. selenase 100 ?g peroral [Concomitant]
     Indication: Product used for unknown indication
     Dosage: AMPOULE
     Route: 048
  21. milgamma 300mg [Concomitant]
     Indication: Product used for unknown indication
     Route: 048

REACTIONS (5)
  - Fall [Unknown]
  - Pain [Unknown]
  - Therapeutic drug monitoring analysis incorrectly performed [Unknown]
  - Syncope [Unknown]
  - Therapeutic drug monitoring analysis not performed [Unknown]
